FAERS Safety Report 12745284 (Version 1)
Quarter: 2016Q3

REPORT INFORMATION
  Report Type: Spontaneous
  Country: US (occurrence: US)
  Receive Date: 20160914
  Receipt Date: 20160914
  Transmission Date: 20161109
  Serious: Yes (Hospitalization)
  Sender: FDA-Public Use
  Company Number: None

PATIENT
  Age: 1 Year
  Sex: Male
  Weight: 26.4 kg

DRUGS (5)
  1. METHOTREXATE. [Suspect]
     Active Substance: METHOTREXATE
     Dates: end: 20160822
  2. CYTARABINE. [Suspect]
     Active Substance: CYTARABINE
     Dates: end: 20160813
  3. PREDNISONE. [Suspect]
     Active Substance: PREDNISONE
     Dates: end: 20160828
  4. VINCRISTINE SULFATE. [Suspect]
     Active Substance: VINCRISTINE SULFATE
     Dates: end: 20160822
  5. ONCASPAR [Suspect]
     Active Substance: PEGASPARGASE
     Dosage: 2400 UNIT
     Dates: end: 20160817

REACTIONS (12)
  - Hypoxia [None]
  - Anaemia [None]
  - Hyperbilirubinaemia [None]
  - Pyrexia [None]
  - Depressed level of consciousness [None]
  - Blood urine present [None]
  - Hypotension [None]
  - Transaminases increased [None]
  - Red blood cell spherocytes present [None]
  - Hepatomegaly [None]
  - Haemolytic anaemia [None]
  - Posterior reversible encephalopathy syndrome [None]

NARRATIVE: CASE EVENT DATE: 20160829
